FAERS Safety Report 18270724 (Version 4)
Quarter: 2020Q4

REPORT INFORMATION
  Report Type: Spontaneous
  Country: US (occurrence: US)
  Receive Date: 20200915
  Receipt Date: 20201028
  Transmission Date: 20210113
  Serious: Yes (Other)
  Sender: FDA-Public Use
  Company Number: US-LEXICON PHARMACEUTICALS, INC-20-1606-00717

PATIENT
  Age: 72 Year
  Sex: Female

DRUGS (6)
  1. XERMELO [Suspect]
     Active Substance: TELOTRISTAT ETHYL
     Indication: NEUROENDOCRINE TUMOUR
  2. XARELTO [Suspect]
     Active Substance: RIVAROXABAN
  3. XERMELO [Suspect]
     Active Substance: TELOTRISTAT ETHYL
     Indication: CARCINOID SYNDROME
     Dates: start: 20200827
  4. ELIQUIS [Concomitant]
     Active Substance: APIXABAN
  5. GABAPENTIN. [Concomitant]
     Active Substance: GABAPENTIN
     Dosage: DOSE REDUCED
  6. SANDOSTATIN [Concomitant]
     Active Substance: OCTREOTIDE ACETATE
     Indication: PRODUCT USED FOR UNKNOWN INDICATION
     Route: 065

REACTIONS (4)
  - Renal impairment [Recovering/Resolving]
  - Weight decreased [Unknown]
  - Depression [Unknown]
  - Pruritus [Unknown]
